FAERS Safety Report 8716483 (Version 3)
Quarter: 2012Q4

REPORT INFORMATION
  Report Type: 
  Country: US (occurrence: US)
  Receive Date: 20120810
  Receipt Date: 20121012
  Transmission Date: 20130627
  Serious: No
  Sender: FDA-Public Use
  Company Number: US-009507513-1208USA003302

PATIENT
  Age: 36 Year
  Sex: Female
  Weight: 49.89 kg

DRUGS (1)
  1. IMPLANON [Suspect]
     Indication: CONTRACEPTION
     Dosage: UNK
     Route: 059
     Dates: start: 20120806

REACTIONS (2)
  - Product quality issue [Unknown]
  - No adverse event [Unknown]
